FAERS Safety Report 15315585 (Version 3)
Quarter: 2018Q4

REPORT INFORMATION
  Report Type: Report from Study
  Country: None (occurrence: US)
  Receive Date: 20180824
  Receipt Date: 20181017
  Transmission Date: 20190204
  Serious: Yes (Hospitalization)
  Sender: FDA-Public Use
  Company Number: US-ABBVIE-18K-163-2457686-00

PATIENT
  Sex: Female
  Weight: 64.92 kg

DRUGS (2)
  1. HUMIRA [Suspect]
     Active Substance: ADALIMUMAB
     Indication: CROHN^S DISEASE
     Route: 058
  2. HUMIRA [Suspect]
     Active Substance: ADALIMUMAB
     Route: 058
     Dates: start: 20180824

REACTIONS (9)
  - Nephrolithiasis [Unknown]
  - Diarrhoea [Unknown]
  - Blood potassium decreased [Unknown]
  - Therapeutic response shortened [Unknown]
  - Blood creatine increased [Unknown]
  - Renal impairment [Unknown]
  - Dehydration [Unknown]
  - Abdominal discomfort [Unknown]
  - Infection [Recovered/Resolved]
